FAERS Safety Report 24743144 (Version 1)
Quarter: 2024Q4

REPORT INFORMATION
  Report Type: Spontaneous
  Country: PT (occurrence: PT)
  Receive Date: 20241217
  Receipt Date: 20241217
  Transmission Date: 20250115
  Serious: Yes (Hospitalization, Other)
  Sender: SANOFI AVENTIS
  Company Number: PT-DialogSolutions-SAAVPROD-PI715090-C1

PATIENT
  Age: 39 Year
  Sex: Female

DRUGS (1)
  1. RIFAMPIN [Suspect]
     Active Substance: RIFAMPIN
     Indication: Latent tuberculosis
     Dosage: UNK

REACTIONS (8)
  - Normochromic normocytic anaemia [Recovered/Resolved]
  - Anaemia [Recovered/Resolved]
  - Haemolysis [Recovered/Resolved]
  - Thrombocytopenia [Recovered/Resolved]
  - Haematemesis [Recovered/Resolved]
  - Mouth haemorrhage [Recovered/Resolved]
  - Acute kidney injury [Recovered/Resolved]
  - Renal impairment [Recovered/Resolved]
